FAERS Safety Report 22400269 (Version 1)
Quarter: 2023Q2

REPORT INFORMATION
  Report Type: Spontaneous
  Country: US (occurrence: None)
  Receive Date: 20230601
  Receipt Date: 20230601
  Transmission Date: 20230721
  Serious: Yes (Other)
  Sender: FDA-Public Use
  Company Number: None

PATIENT
  Age: 25 Year
  Sex: Female
  Weight: 159 kg

DRUGS (3)
  1. TRIFAROTENE [Suspect]
     Active Substance: TRIFAROTENE
     Indication: Acne
     Dosage: QHS  TOPICAL?
     Route: 061
     Dates: start: 20230127, end: 20230222
  2. AKLIEF [Suspect]
     Active Substance: TRIFAROTENE
     Indication: Acne
     Dosage: QHS TOPICAL?
     Route: 061
     Dates: start: 20230127, end: 20230222
  3. TRI-LO-SPRINTEC [Suspect]
     Active Substance: ETHINYL ESTRADIOL\NORGESTIMATE

REACTIONS (3)
  - Adnexal torsion [None]
  - Ovarian germ cell teratoma benign [None]
  - Adnexa uteri cyst [None]

NARRATIVE: CASE EVENT DATE: 20230208
